FAERS Safety Report 7738923-8 (Version None)
Quarter: 2011Q3

REPORT INFORMATION
  Report Type: 
  Country: None (occurrence: None)
  Receive Date: 20110909
  Receipt Date: 20110829
  Transmission Date: 20111222
  Serious: No
  Sender: FDA-Public Use
  Company Number: US-BIOGENIDEC-2010BI039808

PATIENT
  Age: 54 Year
  Sex: Female

DRUGS (2)
  1. TYSABRI [Suspect]
     Indication: MULTIPLE SCLEROSIS
     Route: 042
     Dates: start: 20100824
  2. AVONEX [Concomitant]
     Indication: MULTIPLE SCLEROSIS
     Route: 030

REACTIONS (7)
  - POOR VENOUS ACCESS [None]
  - COGNITIVE DISORDER [None]
  - CENTRAL VENOUS CATHETERISATION [None]
  - FALL [None]
  - HYPOAESTHESIA [None]
  - MUSCULAR WEAKNESS [None]
  - FATIGUE [None]
